FAERS Safety Report 8509616-4 (Version None)
Quarter: 2012Q3

REPORT INFORMATION
  Report Type: 
  Country: None (occurrence: None)
  Receive Date: 20120713
  Receipt Date: 20120705
  Transmission Date: 20120928
  Serious: Yes (Hospitalization)
  Sender: FDA-Public Use
  Company Number: DE-JNJFOC-20120500733

PATIENT
  Sex: Female
  Weight: 65 kg

DRUGS (7)
  1. XARELTO [Suspect]
     Indication: CEREBROVASCULAR ACCIDENT PROPHYLAXIS
     Route: 048
     Dates: start: 20120201, end: 20120423
  2. HYDROCHLOROTHIAZIDE [Concomitant]
     Indication: HYPERTENSION
  3. XARELTO [Suspect]
     Indication: ATRIAL FIBRILLATION
     Route: 048
     Dates: start: 20120201, end: 20120423
  4. CANDESARTAN [Concomitant]
     Indication: HYPERTENSION
  5. ASPIRIN [Suspect]
     Indication: PRODUCT USED FOR UNKNOWN INDICATION
  6. CORDANUM [Concomitant]
     Indication: HYPERTENSION
  7. DIHYDRALAZINE SULFATE [Concomitant]
     Indication: HYPERTENSION

REACTIONS (3)
  - NAUSEA [None]
  - IRON DEFICIENCY ANAEMIA [None]
  - DECREASED APPETITE [None]
